FAERS Safety Report 21118579 (Version 1)
Quarter: 2022Q3

REPORT INFORMATION
  Report Type: Spontaneous
  Country: US (occurrence: None)
  Receive Date: 20220722
  Receipt Date: 20220722
  Transmission Date: 20221027
  Serious: Yes (Life-Threatening, Other)
  Sender: FDA-Public Use
  Company Number: US-ROCHE-3140150

PATIENT
  Age: 21 Year
  Sex: Male
  Weight: 104.42 kg

DRUGS (4)
  1. TAMIFLU [Suspect]
     Active Substance: OSELTAMIVIR PHOSPHATE
     Indication: Influenza
     Route: 048
  2. RISPERIDONE [Concomitant]
     Active Substance: RISPERIDONE
     Indication: Sleep disorder
     Route: 048
  3. RISPERIDONE [Concomitant]
     Active Substance: RISPERIDONE
     Indication: Unevaluable event
     Dosage: AT NIGHT
     Route: 048
     Dates: start: 20220526, end: 20220531
  4. LAMICTAL [Concomitant]
     Active Substance: LAMOTRIGINE
     Indication: Paranoia

REACTIONS (8)
  - Suicide attempt [Unknown]
  - Suicidal ideation [Unknown]
  - Paranoia [Recovered/Resolved]
  - Psychiatric symptom [Not Recovered/Not Resolved]
  - Loss of consciousness [Recovered/Resolved]
  - Fall [Unknown]
  - Catatonia [Recovered/Resolved]
  - Eye movement disorder [Unknown]

NARRATIVE: CASE EVENT DATE: 20220501
